FAERS Safety Report 6490106-8 (Version None)
Quarter: 2009Q4

REPORT INFORMATION
  Report Type: 
  Country: None (occurrence: None)
  Receive Date: 20091211
  Receipt Date: 20090421
  Transmission Date: 20100525
  Serious: No
  Sender: FDA-Public Use
  Company Number: A0773854A

PATIENT
  Age: 55 Year
  Sex: Male
  Weight: 88.6 kg

DRUGS (13)
  1. FLUTICASONE PROPIONATE [Suspect]
     Indication: NASAL CONGESTION
     Dosage: 2SPR TWICE PER DAY
     Route: 045
  2. FLONASE [Concomitant]
  3. PAROXETINE [Concomitant]
     Indication: PAIN
     Dosage: 20MG PER DAY
  4. METHOCARBAMOL [Concomitant]
     Dosage: 750MG PER DAY
  5. ASTELIN [Concomitant]
     Dosage: 2SPR PER DAY
  6. LIPITOR [Concomitant]
     Dosage: 80MG PER DAY
  7. VITAMIN E [Concomitant]
  8. OMEGA 3-FATTY ACID [Concomitant]
  9. IBUPROFEN [Concomitant]
     Dosage: 200MG PER DAY
  10. MULTI-VITAMIN [Concomitant]
  11. ADVAIR DISKUS 100/50 [Concomitant]
     Dosage: 2PUFF PER DAY
  12. ALBUTEROL [Concomitant]
     Dosage: 4PUFF PER DAY
  13. OMEPRAZOLE [Concomitant]

REACTIONS (3)
  - EPISTAXIS [None]
  - EXPIRED DRUG ADMINISTERED [None]
  - PRODUCT QUALITY ISSUE [None]
